APPROVED DRUG PRODUCT: FLECAINIDE ACETATE
Active Ingredient: FLECAINIDE ACETATE
Strength: 100MG
Dosage Form/Route: TABLET;ORAL
Application: A075882 | Product #002 | TE Code: AB
Applicant: ANI PHARMACEUTICALS INC
Approved: Oct 28, 2002 | RLD: No | RS: No | Type: RX